FAERS Safety Report 8640274 (Version 3)
Quarter: 2014Q2

REPORT INFORMATION
  Report Type: Report from Study
  Country: US (occurrence: US)
  Receive Date: 20120628
  Receipt Date: 20140626
  Transmission Date: 20141212
  Serious: Yes (Other)
  Sender: FDA-Public Use
  Company Number: US-MYLANLABS-2012S1004059

PATIENT
  Age: 48 Year
  Sex: Female

DRUGS (5)
  1. CLOZAPINE TABLETS [Suspect]
     Route: 048
     Dates: start: 200801, end: 20120217
  2. CLOZAPINE TABLETS [Suspect]
     Route: 048
     Dates: start: 20120222
  3. CLOZAPINE TABLETS [Suspect]
     Route: 048
  4. SEROQUEL [Concomitant]
     Route: 048
  5. DEPAKOTE [Concomitant]
     Route: 048

REACTIONS (2)
  - Granulocytopenia [Not Recovered/Not Resolved]
  - Leukopenia [Recovered/Resolved]
